FAERS Safety Report 22295013 (Version 1)
Quarter: 2023Q2

REPORT INFORMATION
  Report Type: Report from Study
  Country: AR (occurrence: AR)
  Receive Date: 20230508
  Receipt Date: 20230508
  Transmission Date: 20230721
  Serious: Yes (Hospitalization, Other)
  Sender: FDA-Public Use
  Company Number: AR-SA-SAC20230413001620

PATIENT
  Age: 65 Year
  Sex: Female
  Weight: 70 kg

DRUGS (1)
  1. AGALSIDASE BETA [Suspect]
     Active Substance: AGALSIDASE BETA
     Indication: Fabry^s disease
     Dosage: 70 MG, QOW
     Route: 041
     Dates: end: 20230410

REACTIONS (17)
  - Tremor [Recovered/Resolved]
  - Myalgia [Recovered/Resolved]
  - Pyrexia [Recovered/Resolved]
  - Feeling cold [Recovered/Resolved]
  - Chills [Recovered/Resolved]
  - Eye pain [Unknown]
  - Hepatic enzyme increased [Unknown]
  - Torticollis [Unknown]
  - Pain [Unknown]
  - Malaise [Unknown]
  - Flushing [Unknown]
  - Dengue fever [Not Recovered/Not Resolved]
  - White blood cell count increased [Recovering/Resolving]
  - Thrombocytopenia [Not Recovered/Not Resolved]
  - Escherichia urinary tract infection [Unknown]
  - Pain [Recovered/Resolved]
  - Neck pain [Recovering/Resolving]

NARRATIVE: CASE EVENT DATE: 20230401
